FAERS Safety Report 11164802 (Version 3)
Quarter: 2015Q3

REPORT INFORMATION
  Report Type: Spontaneous
  Country: US (occurrence: US)
  Receive Date: 20150604
  Receipt Date: 20150812
  Transmission Date: 20151125
  Serious: Yes (Other)
  Sender: FDA-Public Use
  Company Number: CC15-0673(2)

PATIENT
  Age: 76 Year
  Sex: Male
  Weight: 122.73 kg

DRUGS (6)
  1. LEVOTHYROXINE. [Concomitant]
     Active Substance: LEVOTHYROXINE
  2. LOSARTAN. [Concomitant]
     Active Substance: LOSARTAN
  3. ACYCLOVIR. [Concomitant]
     Active Substance: ACYCLOVIR
  4. HYDROCHLOROTHIAZIDE. [Concomitant]
     Active Substance: HYDROCHLOROTHIAZIDE
  5. SPIRIVA [Concomitant]
     Active Substance: TIOTROPIUM BROMIDE MONOHYDRATE
  6. IMIQUIMOD. [Suspect]
     Active Substance: IMIQUIMOD
     Indication: SQUAMOUS CELL CARCINOMA
     Route: 061
     Dates: start: 201503, end: 201503

REACTIONS (6)
  - Accidental exposure to product [Not Recovered/Not Resolved]
  - Blindness unilateral [Recovering/Resolving]
  - Eye irritation [Recovered/Resolved]
  - Retinal detachment [Not Recovered/Not Resolved]
  - Off label use [Not Recovered/Not Resolved]
  - Eye disorder [Recovering/Resolving]

NARRATIVE: CASE EVENT DATE: 201503
